FAERS Safety Report 10010910 (Version 1)
Quarter: 2014Q1

REPORT INFORMATION
  Report Type: Spontaneous
  Country: IT (occurrence: None)
  Receive Date: 20140311
  Receipt Date: 20140311
  Transmission Date: 20141002
  Serious: Yes (Other)
  Sender: FDA-Public Use
  Company Number: FK201400732

PATIENT
  Age: 56 Year
  Sex: 0

DRUGS (3)
  1. IRINOTECAN HYDROCHLORIDE DIHYDRATE [Suspect]
     Indication: COLON CANCER
     Dosage: CYCLICAL, INTRAVENOUS (NOT OTHERWISE SPECIFIED)
     Route: 042
     Dates: start: 20140104, end: 20140121
  2. ERBITUX [Suspect]
     Indication: COLON CANCER
     Dosage: CYCLICAL, INTRAVENOUS (NOT OTHERWISE SPECIFIED)
     Route: 042
     Dates: start: 20140104, end: 20140121
  3. XELODA [Suspect]
     Indication: COLON CANCER
     Dosage: 1D
     Route: 048
     Dates: start: 20140104, end: 20140121

REACTIONS (1)
  - Skin toxicity [None]
